FAERS Safety Report 6737078-6 (Version None)
Quarter: 2010Q2

REPORT INFORMATION
  Report Type: 
  Country: None (occurrence: None)
  Receive Date: 20100524
  Receipt Date: 20100517
  Transmission Date: 20101027
  Serious: Yes (Hospitalization)
  Sender: FDA-Public Use
  Company Number: FR-BIOGENIDEC-2010BI016092

PATIENT
  Age: 25 Year
  Sex: Female

DRUGS (1)
  1. TYSABRI [Suspect]
     Indication: MULTIPLE SCLEROSIS
     Route: 042
     Dates: start: 20070901, end: 20091126

REACTIONS (4)
  - HYPOTENSION [None]
  - MULTIPLE SCLEROSIS RELAPSE [None]
  - PRESYNCOPE [None]
  - TACHYCARDIA [None]
